FAERS Safety Report 7024908-6 (Version None)
Quarter: 2010Q3

REPORT INFORMATION
  Report Type: 
  Country: None (occurrence: None)
  Receive Date: 20100920
  Receipt Date: 20100520
  Transmission Date: 20110219
  Serious: Yes (Other)
  Sender: FDA-Public Use
  Company Number: 2010057707

PATIENT
  Age: 50 Year
  Sex: Female

DRUGS (1)
  1. DILANTIN-125 [Suspect]
     Dosage: 200 MG, AT BED TIME

REACTIONS (1)
  - STEVENS-JOHNSON SYNDROME [None]
